FAERS Safety Report 8135318-2 (Version None)
Quarter: 2012Q1

REPORT INFORMATION
  Report Type: 
  Country: None (occurrence: None)
  Receive Date: 20120214
  Receipt Date: 20120207
  Transmission Date: 20120608
  Serious: Yes (Death, Disabling, Other)
  Sender: FDA-Public Use
  Company Number: PL-ROCHE-1028519

PATIENT
  Sex: Female
  Weight: 52 kg

DRUGS (6)
  1. FENTANYL [Concomitant]
     Indication: PAIN
     Dosage: 25-50 MCG/H PLASTER EVERY 3 DAYS
     Route: 062
     Dates: start: 20091201
  2. ZOMETA [Concomitant]
     Indication: METASTASES TO BONE
     Route: 042
     Dates: start: 20091231, end: 20100201
  3. XELODA [Suspect]
     Indication: BREAST CANCER
     Dosage: 3800, 1-14/EVERY 21
     Route: 048
     Dates: start: 20091230, end: 20100318
  4. XELODA [Suspect]
     Dosage: 2950, 1-14/EVERY 21
     Dates: start: 20100318, end: 20100728
  5. XELODA [Suspect]
     Dosage: 2300,  1-14/EVERY 21
     Dates: start: 20100728, end: 20110329
  6. KETOPROFEN [Concomitant]
     Indication: PAIN
     Dosage: 100-300 MG/D
     Route: 048
     Dates: start: 20091201

REACTIONS (7)
  - PATHOLOGICAL FRACTURE [None]
  - NEUROPATHY PERIPHERAL [None]
  - GENERAL PHYSICAL HEALTH DETERIORATION [None]
  - PROGRESSIVE MUSCULAR ATROPHY [None]
  - PARAPARESIS [None]
  - DEATH [None]
  - PALMAR-PLANTAR ERYTHRODYSAESTHESIA SYNDROME [None]
